FAERS Safety Report 21910551 (Version 1)
Quarter: 2023Q1

REPORT INFORMATION
  Report Type: Spontaneous
  Country: US (occurrence: US)
  Receive Date: 20230125
  Receipt Date: 20230125
  Transmission Date: 20230417
  Serious: No
  Sender: FDA-Public Use
  Company Number: US-ALLERGAN-2205390US

PATIENT
  Sex: Female

DRUGS (28)
  1. BOTOX [Suspect]
     Active Substance: ONABOTULINUMTOXINA
     Indication: Migraine
     Dosage: 400 UNITS, SINGLE
     Dates: start: 20211210, end: 20211210
  2. BOTOX [Suspect]
     Active Substance: ONABOTULINUMTOXINA
     Indication: Torticollis
  3. MODERNA COVID-19 VACCINE [Suspect]
     Active Substance: ELASOMERAN
     Indication: Product used for unknown indication
     Dates: start: 20211113, end: 20211113
  4. PROAIR HFA [Concomitant]
     Active Substance: ALBUTEROL SULFATE
     Indication: Chronic obstructive pulmonary disease
     Dosage: 108 MCG 1 PUFF EVERY 4 HOURS AS NEEDED
     Route: 055
  5. PROAIR HFA [Concomitant]
     Active Substance: ALBUTEROL SULFATE
     Indication: Asthma
  6. SPIRIVA [Concomitant]
     Active Substance: TIOTROPIUM BROMIDE MONOHYDRATE
     Indication: Chronic obstructive pulmonary disease
     Dosage: 18 MCGS 1 CAPSULE INHALED ONCE DAILY
     Route: 055
  7. SPIRIVA [Concomitant]
     Active Substance: TIOTROPIUM BROMIDE MONOHYDRATE
     Indication: Asthma
  8. ADVAIR HFA [Concomitant]
     Active Substance: FLUTICASONE PROPIONATE\SALMETEROL XINAFOATE
     Indication: Chronic obstructive pulmonary disease
     Dosage: 500/50 1 PUFF TWO TIMES A DAY
     Route: 055
  9. ADVAIR HFA [Concomitant]
     Active Substance: FLUTICASONE PROPIONATE\SALMETEROL XINAFOATE
     Indication: Asthma
  10. BACLOFEN [Concomitant]
     Active Substance: BACLOFEN
     Indication: Fibromyalgia
     Dosage: 20 MG, TID
     Route: 048
  11. BACLOFEN [Concomitant]
     Active Substance: BACLOFEN
     Indication: Sciatica
  12. VALIUM [Concomitant]
     Active Substance: DIAZEPAM
     Indication: Anxiety
     Dosage: 10 MG, TID
     Route: 048
  13. VALIUM [Concomitant]
     Active Substance: DIAZEPAM
     Indication: Muscle relaxant therapy
  14. AMBIEN [Concomitant]
     Active Substance: ZOLPIDEM TARTRATE
     Indication: Sleep disorder
     Dosage: 5 MG, QHS
     Route: 048
  15. TRIAMCINOLONE [Concomitant]
     Active Substance: TRIAMCINOLONE
     Indication: Rash
     Dosage: UNK UNK, BID
     Route: 061
  16. UBRELVY [Concomitant]
     Active Substance: UBROGEPANT
     Indication: Migraine
     Dosage: 100 MG 1 TABLET AT ONSET OF MIGRAINE, CAN REPEAT IN 2 HOURS AS NEEDED
     Route: 048
  17. GABAPENTIN [Concomitant]
     Active Substance: GABAPENTIN
     Indication: Neuralgia
     Dosage: 300 MG, TID
     Route: 048
  18. FLUNITRAZEPAM [Concomitant]
     Active Substance: FLUNITRAZEPAM
     Indication: Restless legs syndrome
     Dosage: 1 DF, QHS
     Route: 048
  19. VALPROIC ACID [Concomitant]
     Active Substance: VALPROIC ACID
     Indication: Migraine
     Dosage: 250 MG 4 CAPSULES AT BEDTIME
     Route: 048
  20. VALPROIC ACID [Concomitant]
     Active Substance: VALPROIC ACID
     Indication: Depression
  21. ZOFRAN [Concomitant]
     Active Substance: ONDANSETRON HYDROCHLORIDE
     Indication: Nausea
     Dosage: 8 MG 2 TIMES DAILY AS NEEDED
     Route: 048
  22. TOPAMAX [Concomitant]
     Active Substance: TOPIRAMATE
     Indication: Migraine
     Dosage: 100 MG, BID
     Route: 048
  23. BUSPIRONE [Concomitant]
     Active Substance: BUSPIRONE HYDROCHLORIDE
     Indication: Anxiety
     Dosage: 1 DF, BID
     Route: 048
  24. AMANTADINE [Concomitant]
     Active Substance: AMANTADINE
     Indication: Torticollis
     Dosage: 100 MG 2 CAPSULES BEFORE NOON DAILY
     Route: 048
  25. ADDERALL [Concomitant]
     Active Substance: AMPHETAMINE ASPARTATE\AMPHETAMINE SULFATE\DEXTROAMPHETAMINE SACCHARATE\DEXTROAMPHETAMINE SULFATE
     Indication: Attention deficit hyperactivity disorder
     Dosage: 1- 20 MG TABLET AT 5 AM AND 1 10 MG TABLET AT 10 AM. DAILY
     Route: 048
  26. VRAYLAR [Concomitant]
     Active Substance: CARIPRAZINE
     Indication: Depression
     Dosage: 1.5 MG, QD
     Route: 048
  27. VRAYLAR [Concomitant]
     Active Substance: CARIPRAZINE
     Indication: Bipolar I disorder
  28. INFLUENZA VIRUS VACCINE [Concomitant]
     Active Substance: INFLUENZA VIRUS VACCINE
     Dates: start: 20211214, end: 20211214

REACTIONS (10)
  - Rib fracture [Unknown]
  - Chronic obstructive pulmonary disease [Recovered/Resolved]
  - Fatigue [Recovered/Resolved]
  - Asthma [Recovered/Resolved]
  - Dysphonia [Recovered/Resolved]
  - Dyspnoea [Recovering/Resolving]
  - Upper respiratory tract infection [Recovered/Resolved]
  - Speech disorder [Recovered/Resolved]
  - Wheezing [Recovering/Resolving]
  - Influenza like illness [Unknown]

NARRATIVE: CASE EVENT DATE: 20211201
